FAERS Safety Report 17951609 (Version 3)
Quarter: 2020Q3

REPORT INFORMATION
  Report Type: Spontaneous
  Country: DE (occurrence: JP)
  Receive Date: 20200626
  Receipt Date: 20200911
  Transmission Date: 20201103
  Serious: Yes (Hospitalization)
  Sender: FDA-Public Use
  Company Number: JP-ELI_LILLY_AND_COMPANY-JP202006011189

PATIENT
  Age: 80 Year
  Sex: Male

DRUGS (12)
  1. GASTER [Concomitant]
     Active Substance: FAMOTIDINE
     Indication: PRODUCT USED FOR UNKNOWN INDICATION
     Dosage: 20MG/2ML
     Dates: start: 20200421
  2. DEXART [Concomitant]
     Active Substance: DEXAMETHASONE SODIUM PHOSPHATE
     Indication: PREMEDICATION
     Dosage: 1.65 AND 6.6 MG
  3. ACETAMINOPHEN. [Concomitant]
     Active Substance: ACETAMINOPHEN
     Indication: PRODUCT USED FOR UNKNOWN INDICATION
     Dosage: 1.5 G, QID (MORNING, NOON, AFTER SUPPER AND BEFORE BED) FOR 9 DAYS
     Route: 048
  4. POLARAMINE [Concomitant]
     Active Substance: DEXCHLORPHENIRAMINE MALEATE
     Indication: PREMEDICATION
     Dosage: 5 MG
  5. ERBITUX [Suspect]
     Active Substance: CETUXIMAB
     Indication: GINGIVAL CANCER
     Dosage: 400 MG/M2, UNKNOWN
     Route: 041
     Dates: start: 20200421
  6. CARBOPLATIN. [Suspect]
     Active Substance: CARBOPLATIN
     Indication: GINGIVAL CANCER
     Dosage: 169 MG, UNKNOWN (AUC EQUALED TO 2.5)
     Route: 042
  7. PACLITAXEL. [Suspect]
     Active Substance: PACLITAXEL
     Indication: GINGIVAL CANCER
     Dosage: 100 MG/16.7 ML AND 30 MG/5ML
     Route: 065
  8. GRANISETRON [Concomitant]
     Active Substance: GRANISETRON
     Indication: PRODUCT USED FOR UNKNOWN INDICATION
     Dosage: 3 MG
     Route: 041
  9. JUZENTAIHOTO [ANGELICA ACUTILOBA ROOT;ASTRAGA [Concomitant]
     Indication: PRODUCT USED FOR UNKNOWN INDICATION
     Dosage: EXTRACT GRANULES (2.5 G/UNIT),TJ?48 DIVIDED INTO 3 TIMES FOR 14 DAYS
     Route: 048
  10. LOSARTAN POTASSIUM. [Concomitant]
     Active Substance: LOSARTAN POTASSIUM
     Indication: PRODUCT USED FOR UNKNOWN INDICATION
     Dosage: 25 MG (TOWA) AT TABLET, (AFTER BREAKFAST) FOR 14 DAYS
     Route: 048
  11. AZULENE [Concomitant]
     Active Substance: AZULENE
     Indication: PRODUCT USED FOR UNKNOWN INDICATION
     Dosage: 0.4 %6 UNITS/DAY DIVIDED INTO 5 TIMES FOR 9 DAYS FOR GARGLE
  12. NIFEDIPINE. [Concomitant]
     Active Substance: NIFEDIPINE
     Indication: PRODUCT USED FOR UNKNOWN INDICATION
     Dosage: 20 MG, DAILY 1 TABLET (AFTER BREAKFAST) FOR 14 DAYS
     Route: 048

REACTIONS (2)
  - Pleural effusion [Recovered/Resolved]
  - Pyrexia [Recovered/Resolved]

NARRATIVE: CASE EVENT DATE: 202004
